FAERS Safety Report 7250670-8 (Version None)
Quarter: 2011Q1

REPORT INFORMATION
  Report Type: 
  Country: None (occurrence: None)
  Receive Date: 20110128
  Receipt Date: 20110121
  Transmission Date: 20110831
  Serious: Yes (Other)
  Sender: FDA-Public Use
  Company Number: DK-PFIZER INC-2011015996

PATIENT
  Age: 54 Year
  Sex: Female

DRUGS (7)
  1. DOLOL [Concomitant]
     Dosage: 50 MG, 1X/DAY
     Route: 048
     Dates: start: 20010101
  2. MABTHERA [Suspect]
     Indication: RHEUMATOID ARTHRITIS
     Dosage: 1000 MG, 1X/DAY
     Route: 042
     Dates: start: 20100901
  3. FOLIC ACID [Concomitant]
     Indication: RHEUMATOID ARTHRITIS
     Dosage: 5 MG, 1X/DAY
     Route: 048
     Dates: start: 20050318
  4. SOLU-MEDROL [Suspect]
     Indication: STEROID THERAPY
     Dosage: 125 MG, 1X/DAY
     Route: 042
     Dates: start: 20100901
  5. METHOTREXATE [Concomitant]
     Indication: RHEUMATOID ARTHRITIS
     Dosage: UNK
  6. PAMOL [Concomitant]
     Dosage: 1000 MG, 1X/DAY
     Route: 048
     Dates: start: 20100901
  7. TAVEGYL [Concomitant]
     Indication: ANTIALLERGIC THERAPY
     Dosage: 1 MG, 1X/DAY
     Route: 042
     Dates: start: 20100901

REACTIONS (5)
  - SWELLING FACE [None]
  - PHARYNGEAL OEDEMA [None]
  - LOCAL SWELLING [None]
  - FLUSHING [None]
  - DYSPNOEA [None]
